FAERS Safety Report 24992591 (Version 2)
Quarter: 2025Q2

REPORT INFORMATION
  Report Type: Spontaneous
  Country: US (occurrence: US)
  Receive Date: 20250221
  Receipt Date: 20250415
  Transmission Date: 20250716
  Serious: No
  Sender: ALEXION PHARMACEUTICALS
  Company Number: US-AstraZeneca-CH-00809257AP

PATIENT
  Age: 78 Year

DRUGS (1)
  1. BYDUREON BCISE [Suspect]
     Active Substance: EXENATIDE
     Dosage: 2 MILLIGRAM, QW
     Route: 065

REACTIONS (5)
  - Incorrect dose administered by device [Unknown]
  - Product dose omission issue [Unknown]
  - Overdose [Unknown]
  - Device leakage [Unknown]
  - Blood glucose increased [Unknown]
